FAERS Safety Report 8303072-7 (Version None)
Quarter: 2012Q2

REPORT INFORMATION
  Report Type: 
  Country: None (occurrence: None)
  Receive Date: 20120422
  Receipt Date: 20120409
  Transmission Date: 20120825
  Serious: Yes (Hospitalization)
  Sender: FDA-Public Use
  Company Number: US-BRISTOL-MYERS SQUIBB COMPANY-16510166

PATIENT
  Age: 61 Year
  Sex: Female

DRUGS (3)
  1. CLOZAPINE [Interacting]
  2. TRAZODONE HCL [Suspect]
  3. FLUOXETINE [Interacting]

REACTIONS (3)
  - INTESTINAL ISCHAEMIA [None]
  - CONSTIPATION [None]
  - ILEUS PARALYTIC [None]
